FAERS Safety Report 19210493 (Version 1)
Quarter: 2021Q2

REPORT INFORMATION
  Report Type: Spontaneous
  Country: US (occurrence: US)
  Receive Date: 20210504
  Receipt Date: 20210504
  Transmission Date: 20210717
  Serious: Yes (Hospitalization, Other)
  Sender: FDA-Public Use
  Company Number: US-AUROBINDO-AUR-APL-2021-017475

PATIENT
  Age: 51 Year
  Sex: Male
  Weight: 87 kg

DRUGS (8)
  1. ROCURONIUM [Concomitant]
     Active Substance: ROCURONIUM BROMIDE
     Indication: ANAESTHESIA
     Dosage: UNK
     Route: 065
  2. PROPOFOL. [Concomitant]
     Active Substance: PROPOFOL
     Indication: ANAESTHESIA
     Dosage: UNK
     Route: 065
  3. ISOFLURANE. [Concomitant]
     Active Substance: ISOFLURANE
     Indication: ANAESTHESIA
     Dosage: UNK
     Route: 065
  4. GLYCOPYRROLATE. [Concomitant]
     Active Substance: GLYCOPYRROLATE
     Indication: PRODUCT USED FOR UNKNOWN INDICATION
     Dosage: 0.3 MILLIGRAM
     Route: 042
  5. MIDAZOLAM. [Concomitant]
     Active Substance: MIDAZOLAM
     Indication: ANAESTHESIA
     Dosage: UNK
     Route: 065
  6. CEFAZOLIN [Concomitant]
     Active Substance: CEFAZOLIN
     Indication: PROPHYLAXIS
     Dosage: 2 GRAM
     Route: 042
  7. FENTANYL. [Concomitant]
     Active Substance: FENTANYL
     Indication: ANAESTHESIA
     Dosage: UNK
     Route: 065
  8. ONDANSETRON [Suspect]
     Active Substance: ONDANSETRON
     Indication: POST PROCEDURAL COMPLICATION
     Dosage: 4 MILLIGRAM
     Route: 042

REACTIONS (7)
  - Nausea [Recovered/Resolved]
  - Chest pain [Recovered/Resolved]
  - Vomiting [Recovered/Resolved]
  - Atrial fibrillation [Recovered/Resolved]
  - Electrocardiogram ST segment elevation [Recovered/Resolved]
  - Arteriospasm coronary [Recovered/Resolved]
  - Hyperhidrosis [Recovered/Resolved]
